FAERS Safety Report 7532890-8 (Version None)
Quarter: 2011Q2

REPORT INFORMATION
  Report Type: 
  Country: None (occurrence: None)
  Receive Date: 20110608
  Receipt Date: 20110601
  Transmission Date: 20111010
  Serious: Yes (Death, Life-Threatening)
  Sender: FDA-Public Use
  Company Number: JP-CELGENEUS-087-21880-10122974

PATIENT
  Sex: Male
  Weight: 47 kg

DRUGS (13)
  1. REVLIMID [Suspect]
     Indication: MULTIPLE MYELOMA
     Dosage: 10 MILLIGRAM
     Route: 048
     Dates: start: 20100917, end: 20100922
  2. ALFAROL [Concomitant]
     Dosage: .5 MILLIGRAM
     Route: 048
     Dates: start: 20100917, end: 20100922
  3. NEUTROGIN [Concomitant]
     Dosage: 100 MICROGRAM
     Route: 058
     Dates: start: 20100918, end: 20100922
  4. DEXAMETHASONE [Suspect]
     Indication: MULTIPLE MYELOMA
     Dosage: 40 MILLIGRAM
     Route: 048
     Dates: start: 20100917, end: 20100920
  5. ASPARA-CA [Concomitant]
     Dosage: 600 MILLIGRAM
     Route: 048
     Dates: start: 20100917, end: 20100922
  6. MAGMITT [Concomitant]
     Dosage: 660 MILLIGRAM
     Route: 048
     Dates: start: 20100917, end: 20100922
  7. SELBEX [Concomitant]
     Indication: PROPHYLAXIS
     Dosage: 150 MILLIGRAM
     Route: 048
     Dates: start: 20100917, end: 20100922
  8. OMEPRAZOLE [Concomitant]
     Indication: PROPHYLAXIS
     Dosage: 60 MILLIGRAM
     Route: 048
     Dates: start: 20100917, end: 20100922
  9. ASPIRIN [Concomitant]
     Indication: PROPHYLAXIS
     Dosage: 100 MILLIGRAM
     Route: 048
     Dates: start: 20100917, end: 20100922
  10. UNASYN [Concomitant]
     Indication: BACTERIAL INFECTION
     Dosage: 1125 MILLIGRAM
     Route: 048
     Dates: start: 20100917, end: 20100922
  11. LOXONIN [Concomitant]
     Indication: BACTERIAL INFECTION
     Dosage: 60 MILLIGRAM
     Route: 048
     Dates: start: 20100921, end: 20100922
  12. PREDNISOLONE [Concomitant]
     Indication: MULTIPLE MYELOMA
     Dosage: 20 MILLIGRAM
     Route: 048
     Dates: start: 20100917, end: 20100922
  13. ALLOPURINOL [Concomitant]
     Dosage: 100 MILLIGRAM
     Route: 048
     Dates: start: 20100917, end: 20100922

REACTIONS (2)
  - BLOOD PRESSURE DECREASED [None]
  - SEPSIS [None]
